FAERS Safety Report 13622409 (Version 1)
Quarter: 2017Q2

REPORT INFORMATION
  Report Type: Spontaneous
  Country: US (occurrence: US)
  Receive Date: 20170607
  Receipt Date: 20170607
  Transmission Date: 20170830
  Serious: No
  Sender: FDA-Public Use
  Company Number: US-ROCHE-1173786

PATIENT
  Age: 46 Year
  Sex: Female

DRUGS (2)
  1. FUZEON [Suspect]
     Active Substance: ENFUVIRTIDE
     Indication: HUMAN IMMUNODEFICIENCY VIRUS TRANSMISSION
     Route: 058
  2. LAMIVUDINE. [Concomitant]
     Active Substance: LAMIVUDINE

REACTIONS (7)
  - Injection site induration [Not Recovered/Not Resolved]
  - Injection site pain [Not Recovered/Not Resolved]
  - Muscle spasms [Recovered/Resolved]
  - Injection site erythema [Not Recovered/Not Resolved]
  - Injection site swelling [Not Recovered/Not Resolved]
  - Injection site pruritus [Not Recovered/Not Resolved]
  - Pain [Not Recovered/Not Resolved]
